FAERS Safety Report 18535812 (Version 3)
Quarter: 2021Q2

REPORT INFORMATION
  Report Type: Report from Study
  Country: TW (occurrence: TW)
  Receive Date: 20201123
  Receipt Date: 20210521
  Transmission Date: 20210717
  Serious: Yes (Death, Hospitalization)
  Sender: FDA-Public Use
  Company Number: TW-INCYTE CORPORATION-2019IN007988

PATIENT

DRUGS (26)
  1. CEFTIBUTEN. [Concomitant]
     Active Substance: CEFTIBUTEN
     Indication: PROPHYLAXIS
     Dosage: 200 MG
     Route: 048
     Dates: start: 20180407, end: 20180410
  2. AUGMENTIN [Concomitant]
     Active Substance: AMOXICILLIN\CLAVULANATE POTASSIUM
     Dosage: 1 G
     Route: 048
     Dates: start: 20180731, end: 20180802
  3. LANSOPRAZOLE. [Concomitant]
     Active Substance: LANSOPRAZOLE
     Indication: GASTROOESOPHAGEAL REFLUX DISEASE
     Dosage: 30 MG
     Route: 048
     Dates: start: 20180423, end: 20180507
  4. ACTEIN [Concomitant]
     Indication: UPPER RESPIRATORY TRACT INFECTION
     Dosage: 600 MG
     Route: 048
     Dates: start: 20171130, end: 20171206
  5. FEBURIC [Concomitant]
     Active Substance: FEBUXOSTAT
     Indication: PROPHYLAXIS
     Dosage: 40 MG
     Route: 065
     Dates: start: 20180621, end: 20180815
  6. JAKAVI [Suspect]
     Active Substance: RUXOLITINIB
     Dosage: 20 MG
     Route: 048
     Dates: start: 20170512, end: 20180111
  7. JAKAVI [Suspect]
     Active Substance: RUXOLITINIB
     Dosage: 30 MG
     Route: 048
     Dates: start: 20180112, end: 20180620
  8. DIPHENHYDRAMINE HCL [Concomitant]
     Active Substance: DIPHENHYDRAMINE HYDROCHLORIDE
     Indication: PROPHYLAXIS
     Dosage: 30 MG
     Route: 042
     Dates: start: 20180404, end: 20180406
  9. BUSCOPAN [Concomitant]
     Active Substance: BUTYLSCOPOLAMINE BROMIDE
     Indication: PANENDOSCOPY
     Dosage: 20 MG
     Route: 030
     Dates: start: 20180412, end: 20180412
  10. FUSIDIC ACID [Concomitant]
     Active Substance: FUSIDIC ACID
     Indication: HERPES ZOSTER
     Dosage: 1 APPLY
     Route: 061
     Dates: start: 20180621
  11. HYDREA [Concomitant]
     Active Substance: HYDROXYUREA
     Indication: MYELOFIBROSIS
     Dosage: 500 MG
     Route: 048
     Dates: start: 20170629, end: 20180810
  12. PARAMOL [PARACETAMOL] [Concomitant]
     Indication: TENDONITIS
     Dosage: 500 MG
     Route: 048
     Dates: start: 20180315, end: 20180321
  13. ACYCLOVIR [ACICLOVIR] [Concomitant]
     Active Substance: ACYCLOVIR
     Indication: HERPES ZOSTER
     Dosage: 1 APPLY
     Route: 061
     Dates: start: 20180621, end: 20180808
  14. XYZAL [Concomitant]
     Active Substance: LEVOCETIRIZINE DIHYDROCHLORIDE
     Indication: MYELOFIBROSIS
     Dosage: 2.5 MG
     Route: 048
     Dates: start: 20170511, end: 20180809
  15. JAKAVI [Suspect]
     Active Substance: RUXOLITINIB
     Indication: MYELOFIBROSIS
     Dosage: 10 MG
     Route: 048
     Dates: start: 20170511
  16. JAKAVI [Suspect]
     Active Substance: RUXOLITINIB
     Dosage: 15 MG, BID (DAILY)
     Route: 048
  17. ALPRALINE [Concomitant]
     Active Substance: ALPRAZOLAM
     Indication: INSOMNIA
     Dosage: 0.5 MG
     Route: 048
     Dates: start: 20170511, end: 20171115
  18. APROVEL [Concomitant]
     Active Substance: IRBESARTAN
     Indication: HYPERTENSION
     Dosage: 75 MG
     Route: 048
     Dates: start: 20170511, end: 20170727
  19. BETAMETHASONE VALERATE. [Concomitant]
     Active Substance: BETAMETHASONE VALERATE
     Indication: PROPHYLAXIS
     Dosage: 1 UNK
     Route: 061
     Dates: start: 20180405, end: 20180406
  20. AUGMENTIN [Concomitant]
     Active Substance: AMOXICILLIN\CLAVULANATE POTASSIUM
     Indication: UPPER RESPIRATORY TRACT INFECTION
     Dosage: 1 G
     Route: 048
     Dates: start: 20171130, end: 20171206
  21. KALIMATE [Concomitant]
     Active Substance: CALCIUM POLYSTYRENE SULFONATE
     Indication: HYPERKALAEMIA
     Dosage: 5 G
     Route: 048
     Dates: start: 20170608
  22. NORVASC [Concomitant]
     Active Substance: AMLODIPINE BESYLATE
     Indication: HYPERTENSION
     Dosage: 5 MG
     Route: 048
     Dates: start: 20170728, end: 20180815
  23. REGROW [DEXTROMETHORPHAN HYDROBROMIDE] [Concomitant]
     Indication: PRODUCT USED FOR UNKNOWN INDICATION
     Dosage: 60 MG
     Route: 048
     Dates: start: 20171130, end: 20171206
  24. REGROW [DEXTROMETHORPHAN HYDROBROMIDE] [Concomitant]
     Dosage: 60 MG
     Route: 048
     Dates: start: 20180731, end: 20180812
  25. ALPRALINE [Concomitant]
     Active Substance: ALPRAZOLAM
     Dosage: UNK
     Route: 048
     Dates: start: 20180302, end: 20180808
  26. MAGNESIUM OXIDE;ZINC [Concomitant]
     Indication: CONSTIPATION PROPHYLAXIS
     Dosage: 250 MG
     Route: 048
     Dates: start: 20180409

REACTIONS (3)
  - Death [Fatal]
  - Pneumonia [Fatal]
  - Chalazion [Fatal]

NARRATIVE: CASE EVENT DATE: 20180502
